FAERS Safety Report 25677476 (Version 2)
Quarter: 2025Q3

REPORT INFORMATION
  Report Type: Spontaneous
  Country: US (occurrence: US)
  Receive Date: 20250813
  Receipt Date: 20250820
  Transmission Date: 20251021
  Serious: No
  Sender: AMGEN
  Company Number: US-AMGEN-USASP2025159843

PATIENT
  Age: 66 Year
  Sex: Female

DRUGS (6)
  1. ENBREL [Suspect]
     Active Substance: ETANERCEPT
     Indication: Rheumatoid arthritis
     Dosage: 50 MILLIGRAM, QWK
     Route: 058
     Dates: start: 202505, end: 2025
  2. TRAMADOL [Concomitant]
     Active Substance: TRAMADOL
     Route: 058
  3. FIORICET [Concomitant]
     Active Substance: ACETAMINOPHEN\BUTALBITAL\CAFFEINE
  4. DORZOLAMIDE [Concomitant]
     Active Substance: DORZOLAMIDE
  5. LATANOPROST [Concomitant]
     Active Substance: LATANOPROST
  6. CELEBREX [Concomitant]
     Active Substance: CELECOXIB

REACTIONS (6)
  - Injection site bruising [Unknown]
  - Injection site pruritus [Recovered/Resolved]
  - Injection site discolouration [Unknown]
  - Migraine [Unknown]
  - Peripheral coldness [Not Recovered/Not Resolved]
  - Cyanosis [Unknown]

NARRATIVE: CASE EVENT DATE: 20250101
